FAERS Safety Report 6283493-7 (Version None)
Quarter: 2009Q3

REPORT INFORMATION
  Report Type: 
  Country: None (occurrence: None)
  Receive Date: 20090724
  Receipt Date: 20090409
  Transmission Date: 20100115
  Serious: No
  Sender: FDA-Public Use
  Company Number: US-ALEXION-A200900306

PATIENT
  Sex: Male

DRUGS (5)
  1. SOLIRIS [Suspect]
     Indication: PAROXYSMAL NOCTURNAL HAEMOGLOBINURIA
     Dosage: 600 MG, QW
     Route: 042
     Dates: start: 20070426, end: 20070517
  2. SOLIRIS [Suspect]
     Dosage: 900 MG, UNK
     Route: 042
     Dates: start: 20070524, end: 20081201
  3. SOLIRIS [Suspect]
     Dosage: UNK, Q2WK
     Route: 042
     Dates: start: 20090201
  4. CRESTOR [Concomitant]
     Dosage: UNK
     Dates: end: 20080101
  5. PRAVASTATIN SODIUM [Concomitant]
     Dosage: 1 UNK, QD
     Route: 048
     Dates: start: 20080101

REACTIONS (2)
  - BLOOD COUNT ABNORMAL [None]
  - PAIN [None]
